FAERS Safety Report 8715117 (Version 3)
Quarter: 2013Q1

REPORT INFORMATION
  Report Type: Spontaneous
  Country: US (occurrence: US)
  Receive Date: 20120809
  Receipt Date: 20130130
  Transmission Date: 20140127
  Serious: Yes (Death, Hospitalization, Other)
  Sender: FDA-Public Use
  Company Number: US-INCYTE CORPORATION-2012IN001442

PATIENT
  Age: 83 None
  Sex: Female
  Weight: 66.67 kg

DRUGS (2)
  1. JAKAFI [Suspect]
     Indication: MYELOFIBROSIS
     Dosage: 5 MG BID
     Route: 048
     Dates: start: 20120330, end: 20120622
  2. JAKAFI [Suspect]
     Dosage: 5 MG, QD
     Route: 048
     Dates: start: 20120706, end: 20120729

REACTIONS (8)
  - Death [Fatal]
  - Subdural haematoma [Unknown]
  - Fall [Not Recovered/Not Resolved]
  - Thrombocytopenia [Not Recovered/Not Resolved]
  - Pneumonia aspiration [Unknown]
  - VIIth nerve paralysis [Unknown]
  - Somnolence [Unknown]
  - Contusion [Unknown]
